FAERS Safety Report 15869840 (Version 2)
Quarter: 2019Q1

REPORT INFORMATION
  Report Type: Report from Study
  Country: BR (occurrence: BR)
  Receive Date: 20190125
  Receipt Date: 20190125
  Transmission Date: 20190417
  Serious: Yes (Hospitalization, Other)
  Sender: FDA-Public Use
  Company Number: PHHY2019BR013718

PATIENT
  Sex: Female
  Weight: 58 kg

DRUGS (3)
  1. LOSARTAN. [Suspect]
     Active Substance: LOSARTAN
     Indication: BLOOD PRESSURE MEASUREMENT
     Dosage: UNK, QD
     Route: 048
  2. ENTRESTO [Suspect]
     Active Substance: SACUBITRIL\VALSARTAN
     Indication: CARDIAC DISORDER
     Dosage: 1 DF (SACUBITRIL 24 MG/VALSARTAN 26 MG), Q12H
     Route: 048
  3. ENTRESTO [Suspect]
     Active Substance: SACUBITRIL\VALSARTAN
     Indication: BLOOD PRESSURE MEASUREMENT
     Dosage: 1 DF (SACUBITRIL 49 MG/VALSARTAN 51 MG), BID
     Route: 048

REACTIONS (18)
  - Eating disorder [Recovering/Resolving]
  - Herpes zoster [Recovered/Resolved]
  - Pain [Unknown]
  - Gait inability [Recovering/Resolving]
  - Blood potassium increased [Recovering/Resolving]
  - Irritability [Unknown]
  - Product use in unapproved indication [Unknown]
  - Blood pressure decreased [Recovered/Resolved]
  - Blister rupture [Recovered/Resolved]
  - Angina pectoris [Unknown]
  - Product prescribing error [Unknown]
  - Immunodeficiency [Recovering/Resolving]
  - Neuralgia [Not Recovered/Not Resolved]
  - Burning sensation [Unknown]
  - Hypersomnia [Recovering/Resolving]
  - Cardiomegaly [Not Recovered/Not Resolved]
  - Ill-defined disorder [Recovering/Resolving]
  - Herpes zoster [Unknown]

NARRATIVE: CASE EVENT DATE: 2018
